FAERS Safety Report 13568463 (Version 1)
Quarter: 2017Q2

REPORT INFORMATION
  Report Type: Spontaneous
  Country: US (occurrence: US)
  Receive Date: 20170522
  Receipt Date: 20170522
  Transmission Date: 20170830
  Serious: Yes (Hospitalization)
  Sender: FDA-Public Use
  Company Number: None

PATIENT
  Age: 52 Year
  Sex: Female

DRUGS (12)
  1. FUROSEMIDE. [Concomitant]
     Active Substance: FUROSEMIDE
  2. SPIRONOLACTONE. [Concomitant]
     Active Substance: SPIRONOLACTONE
  3. CYCLOSPORIN [Concomitant]
     Active Substance: CYCLOSPORINE
  4. OCALIVA [Suspect]
     Active Substance: OBETICHOLIC ACID
     Indication: HEPATIC CIRRHOSIS
     Route: 048
     Dates: start: 20170120
  5. POTASSIUM [Concomitant]
     Active Substance: POTASSIUM
  6. XIFAXAN [Concomitant]
     Active Substance: RIFAXIMIN
  7. AZASAN [Concomitant]
     Active Substance: AZATHIOPRINE
  8. INTEGRA [Concomitant]
     Active Substance: DIETARY SUPPLEMENT
  9. PREDNISONE. [Concomitant]
     Active Substance: PREDNISONE
  10. PROPRANOLOL [Concomitant]
     Active Substance: PROPRANOLOL HYDROCHLORIDE
  11. URSODIOL. [Concomitant]
     Active Substance: URSODIOL
  12. PANTOPRAZOLE [Concomitant]
     Active Substance: PANTOPRAZOLE

REACTIONS (1)
  - Liver transplant [None]

NARRATIVE: CASE EVENT DATE: 20170505
